FAERS Safety Report 5409605-2 (Version None)
Quarter: 2007Q3

REPORT INFORMATION
  Report Type: 
  Country: None (occurrence: None)
  Receive Date: 20070807
  Receipt Date: 20070807
  Transmission Date: 20080115
  Serious: Yes (Other)
  Sender: FDA-Public Use
  Company Number: None

PATIENT
  Age: 4 Year
  Sex: Male
  Weight: 21.3191 kg

DRUGS (1)
  1. JOHNSON'S BABY POWDER [Suspect]

REACTIONS (2)
  - COUGH [None]
  - LOSS OF CONSCIOUSNESS [None]
